FAERS Safety Report 5870031-3 (Version None)
Quarter: 2008Q3

REPORT INFORMATION
  Report Type: 
  Country: None (occurrence: None)
  Receive Date: 20080904
  Receipt Date: 20080617
  Transmission Date: 20090109
  Serious: No
  Sender: FDA-Public Use
  Company Number: US-BAYER-200826655NA

PATIENT
  Age: 29 Year
  Sex: Female

DRUGS (1)
  1. MIRENA [Suspect]
     Indication: CONTRACEPTION
     Dates: start: 20070428, end: 20080602

REACTIONS (2)
  - CERVICAL INCOMPETENCE [None]
  - INTRA-UTERINE CONTRACEPTIVE DEVICE EXPELLED [None]
